FAERS Safety Report 5818265-8 (Version None)
Quarter: 2008Q3

REPORT INFORMATION
  Report Type: 
  Country: None (occurrence: None)
  Receive Date: 20080717
  Receipt Date: 20080707
  Transmission Date: 20090109
  Serious: Yes (Life-Threatening)
  Sender: FDA-Public Use
  Company Number: 002014

PATIENT
  Age: 50 Year
  Sex: Male

DRUGS (7)
  1. BUSULFEX [Suspect]
     Indication: STEM CELL TRANSPLANT
     Dosage: 153 MG, DAILY DOSE,  INTRAVENOUS ; 204  MG, DAILY DOSE; INTRAVENOUS;  51 MG, DAILY DOSE; INTRAVENO
     Route: 042
     Dates: start: 20071024, end: 20071024
  2. BUSULFEX [Suspect]
     Indication: STEM CELL TRANSPLANT
     Dosage: 153 MG, DAILY DOSE,  INTRAVENOUS ; 204  MG, DAILY DOSE; INTRAVENOUS;  51 MG, DAILY DOSE; INTRAVENO
     Route: 042
     Dates: start: 20071025, end: 20071027
  3. BUSULFEX [Suspect]
     Indication: STEM CELL TRANSPLANT
     Dosage: 153 MG, DAILY DOSE,  INTRAVENOUS ; 204  MG, DAILY DOSE; INTRAVENOUS;  51 MG, DAILY DOSE; INTRAVENO
     Route: 042
     Dates: start: 20071028, end: 20071028
  4. CYCLOPHOSPHAMIDE [Concomitant]
  5. VALPROATE SODIUM [Concomitant]
  6. METHOTREXATE [Concomitant]
  7. TACROLIMUS [Concomitant]

REACTIONS (6)
  - ANOREXIA [None]
  - BACTERIAL SEPSIS [None]
  - DIARRHOEA [None]
  - ENTEROCOCCAL SEPSIS [None]
  - NAUSEA [None]
  - STOMATITIS [None]
